FAERS Safety Report 13715526 (Version 2)
Quarter: 2018Q2

REPORT INFORMATION
  Report Type: Spontaneous
  Country: CH (occurrence: CH)
  Receive Date: 20170704
  Receipt Date: 20180604
  Transmission Date: 20180711
  Serious: Yes (Hospitalization, Other)
  Sender: FDA-Public Use
  Company Number: CH-ELI_LILLY_AND_COMPANY-CH201706013042

PATIENT
  Age: 39 Year
  Sex: Female

DRUGS (12)
  1. LORAZEPAM. [Concomitant]
     Active Substance: LORAZEPAM
     Dosage: UNK UNK, UNKNOWN
     Route: 065
  2. CYMBALTA [Suspect]
     Active Substance: DULOXETINE HYDROCHLORIDE
     Dosage: 120 MG, UNKNOWN
     Route: 048
     Dates: start: 20170518, end: 20170612
  3. ESCITALOPRAM [Concomitant]
     Active Substance: ESCITALOPRAM OXALATE
     Dosage: 10 MG, DAILY
     Dates: start: 20170309, end: 20170313
  4. QUETIAPINE. [Concomitant]
     Active Substance: QUETIAPINE
     Dosage: UNK UNK, UNKNOWN
     Route: 065
     Dates: start: 20170501, end: 20170506
  5. CYMBALTA [Suspect]
     Active Substance: DULOXETINE HYDROCHLORIDE
     Dosage: 90 MG, UNKNOWN
     Route: 048
     Dates: start: 20170421, end: 20170518
  6. OLANZAPINE. [Concomitant]
     Active Substance: OLANZAPINE
     Dosage: UNK UNK, UNKNOWN
     Route: 065
     Dates: start: 20170608, end: 20170610
  7. EUTHYROX [Concomitant]
     Active Substance: LEVOTHYROXINE SODIUM
     Dosage: 50 UG, UNKNOWN
     Route: 065
  8. CYMBALTA [Suspect]
     Active Substance: DULOXETINE HYDROCHLORIDE
     Dosage: 60 MG, DAILY
     Route: 048
     Dates: start: 20170317, end: 20170421
  9. CYMBALTA [Suspect]
     Active Substance: DULOXETINE HYDROCHLORIDE
     Dosage: 60 MG, UNKNOWN
     Route: 048
     Dates: start: 20170613, end: 20170620
  10. LYRICA [Concomitant]
     Active Substance: PREGABALIN
     Dosage: 300 MG, UNKNOWN
     Route: 065
  11. ALPRAZOLAM. [Concomitant]
     Active Substance: ALPRAZOLAM
     Dosage: UNK UNK, UNKNOWN
     Route: 065
  12. CYMBALTA [Suspect]
     Active Substance: DULOXETINE HYDROCHLORIDE
     Indication: DEPRESSION
     Dosage: 30 MG, DAILY
     Route: 048
     Dates: start: 20170304, end: 20170317

REACTIONS (3)
  - Hepatocellular injury [Recovering/Resolving]
  - Hepatitis A [Recovering/Resolving]
  - Suicidal ideation [Unknown]

NARRATIVE: CASE EVENT DATE: 20170504
